FAERS Safety Report 9056280 (Version 3)
Quarter: 2013Q3

REPORT INFORMATION
  Report Type: Spontaneous
  Country: US (occurrence: US)
  Receive Date: 20130205
  Receipt Date: 20130823
  Transmission Date: 20140515
  Serious: Yes (Hospitalization)
  Sender: FDA-Public Use
  Company Number: US-009507513-1301USA012404

PATIENT
  Sex: Male

DRUGS (10)
  1. VICTRELIS [Suspect]
     Indication: HEPATITIS C
     Dosage: 800 MG, TID (EVERY 8 HOURS)
     Route: 048
     Dates: start: 20130109
  2. VICTRELIS [Suspect]
     Indication: PROPHYLAXIS AGAINST TRANSPLANT REJECTION
  3. RIBAPAK [Suspect]
  4. PEGASYS [Suspect]
  5. AMLODIPINE [Concomitant]
  6. TACROLIMUS [Concomitant]
  7. PRILOSEC [Concomitant]
  8. MAGNESIUM (UNSPECIFIED) [Concomitant]
  9. METOPROLOL [Concomitant]
  10. TRAMADOL HYDROCHLORIDE [Concomitant]

REACTIONS (4)
  - Hepatotoxicity [Unknown]
  - White blood cell count decreased [Not Recovered/Not Resolved]
  - Feeling abnormal [Not Recovered/Not Resolved]
  - Drug level increased [Unknown]
